FAERS Safety Report 6182311-5 (Version None)
Quarter: 2009Q2

REPORT INFORMATION
  Report Type: 
  Country: None (occurrence: None)
  Receive Date: 20090505
  Receipt Date: 20090505
  Transmission Date: 20091009
  Serious: Yes (Other)
  Sender: FDA-Public Use
  Company Number: None

PATIENT
  Sex: Female
  Weight: 125.1928 kg

DRUGS (3)
  1. LAMICTAL [Suspect]
     Indication: MOOD SWINGS
     Dosage: 25 MGS 1X PO
     Route: 048
     Dates: start: 20090215, end: 20090504
  2. CYMBALTA [Concomitant]
  3. SERIQUAL [Concomitant]

REACTIONS (2)
  - DIPLOPIA [None]
  - VISION BLURRED [None]
